FAERS Safety Report 26019588 (Version 6)
Quarter: 2025Q4

REPORT INFORMATION
  Report Type: Spontaneous
  Country: CO (occurrence: CO)
  Receive Date: 20251110
  Receipt Date: 20251230
  Transmission Date: 20260117
  Serious: Yes (Other)
  Sender: SANDOZ
  Company Number: CO-002147023-NVSC2025CO159696

PATIENT
  Sex: Female
  Weight: 69 kg

DRUGS (9)
  1. FULVESTRANT [Suspect]
     Active Substance: FULVESTRANT
     Indication: Product used for unknown indication
     Dosage: 500 MG
  2. FULVESTRANT [Suspect]
     Active Substance: FULVESTRANT
     Dosage: UNK
  3. KISQALI [Suspect]
     Active Substance: RIBOCICLIB SUCCINATE
     Indication: Breast cancer metastatic
     Dosage: 400 MG, QD
     Dates: start: 20250910
  4. KISQALI [Suspect]
     Active Substance: RIBOCICLIB SUCCINATE
     Indication: Breast cancer
     Dosage: 3 DOSAGE FORM (600 MG), QHS (AT NIGHT  FOR 21 DAYS FOLLOWED BY A 7-DAY BREAK)
  5. KISQALI [Suspect]
     Active Substance: RIBOCICLIB SUCCINATE
     Indication: Hormone receptor positive HER2 negative breast cancer
     Dosage: 600 MG, QD
  6. LEVOTHYROXINE [Concomitant]
     Active Substance: LEVOTHYROXINE
     Indication: Hypothyroidism
     Dosage: 1 DOSAGE FORM (5 MG TABLET) (TAKING IT FOR  TWO YEARS)
  7. ENALAPRIL [Concomitant]
     Active Substance: ENALAPRIL
     Indication: Hypothyroidism
     Dosage: 1 DOSAGE FORM, QD (20 MG TABLET) (TAKING  FOR 21 YERAS)
  8. ENALAPRIL [Concomitant]
     Active Substance: ENALAPRIL
     Indication: Hypertension
  9. VERAPAMIL [Concomitant]
     Active Substance: VERAPAMIL HYDROCHLORIDE
     Indication: Hypertension
     Dosage: 2 DOSAGE FORM, QD (120 MG TABLET)  (TAKING FOR 21 YEARS)

REACTIONS (20)
  - Breast cancer stage IV [Unknown]
  - Breast cancer metastatic [Unknown]
  - Malignant neoplasm progression [Unknown]
  - Metastases to liver [Unknown]
  - Pain [Recovered/Resolved]
  - Metastases to abdominal cavity [Unknown]
  - Metastases to bone [Unknown]
  - Hypersomnia [Recovered/Resolved]
  - Discouragement [Recovered/Resolved]
  - Inflammation [Unknown]
  - Weight decreased [Unknown]
  - Urticaria [Unknown]
  - Gastritis [Recovered/Resolved]
  - Pruritus [Unknown]
  - Asthenia [Not Recovered/Not Resolved]
  - Abdominal pain upper [Unknown]
  - Blister [Recovering/Resolving]
  - Abdominal discomfort [Unknown]
  - Product availability issue [Unknown]
  - Product supply issue [Unknown]
